FAERS Safety Report 17080471 (Version 1)
Quarter: 2019Q4

REPORT INFORMATION
  Report Type: Spontaneous
  Country: KR (occurrence: KR)
  Receive Date: 20191127
  Receipt Date: 20191127
  Transmission Date: 20200122
  Serious: Yes (Other)
  Sender: FDA-Public Use
  Company Number: NVSC2019KR045250

PATIENT
  Age: 66 Year
  Sex: Male

DRUGS (7)
  1. VFEND [Suspect]
     Active Substance: VORICONAZOLE
     Indication: ALTERNARIA INFECTION
     Dosage: 200 MG, BID
     Route: 048
  2. OCUFLOX [Suspect]
     Active Substance: OFLOXACIN
     Indication: ALTERNARIA INFECTION
     Dosage: UNK, BID
     Route: 047
  3. VORICONAZOLE. [Suspect]
     Active Substance: VORICONAZOLE
     Indication: ALTERNARIA INFECTION
     Dosage: 5 TIMES A DAY
     Route: 047
  4. VIGAMOX [Suspect]
     Active Substance: MOXIFLOXACIN HYDROCHLORIDE
     Indication: ALTERNARIA INFECTION
     Dosage: 7 TIMES A DAY
     Route: 047
  5. VIGAMOX [Suspect]
     Active Substance: MOXIFLOXACIN HYDROCHLORIDE
     Dosage: UNK, QID
     Route: 047
  6. VFEND [Suspect]
     Active Substance: VORICONAZOLE
     Dosage: UNK UNK, Q2H
     Route: 047
  7. VFEND [Suspect]
     Active Substance: VORICONAZOLE
     Indication: ALTERNARIA INFECTION
     Dosage: UNK UNK, QH
     Route: 047

REACTIONS (2)
  - Corneal opacity [Unknown]
  - Therapy non-responder [Unknown]
